FAERS Safety Report 9298301 (Version 2)
Quarter: 2013Q2

REPORT INFORMATION
  Report Type: Spontaneous
  Country: US (occurrence: None)
  Receive Date: 20121227
  Receipt Date: 20130507
  Transmission Date: 20140414
  Serious: No
  Sender: FDA-Public Use
  Company Number: PHEH2012US015881

PATIENT
  Age: 26 Year
  Sex: Female

DRUGS (9)
  1. AFINITOR (RAD) UNKNOWN [Suspect]
     Indication: TUBEROUS SCLEROSIS
     Route: 048
     Dates: start: 20120802
  2. CLONIDINE (CLONIDINE) [Concomitant]
  3. PAXIL (PAROXETINE HYDROCHLORIDE) [Concomitant]
  4. ATIVAN (LORAZEPAM) [Concomitant]
  5. LORAZEPAM (LORAZEPAM) [Concomitant]
  6. PAROXETINE (PAROXETINE) [Concomitant]
  7. RISPERDAL (RISPERIDONE) [Concomitant]
  8. TOPAMAX (TOPIRAMATE) [Concomitant]
  9. METFORMIN (METFORMIN) [Concomitant]

REACTIONS (13)
  - Nausea [None]
  - Headache [None]
  - Ear discomfort [None]
  - Vomiting [None]
  - Diarrhoea [None]
  - Kidney infection [None]
  - Blood cholesterol increased [None]
  - Nasopharyngitis [None]
  - Nasal congestion [None]
  - Drug level increased [None]
  - Stomatitis [None]
  - Rash [None]
  - Lip blister [None]
